FAERS Safety Report 9543119 (Version 1)
Quarter: 2013Q3

REPORT INFORMATION
  Report Type: Spontaneous
  Country: US (occurrence: US)
  Receive Date: 20130923
  Receipt Date: 20130923
  Transmission Date: 20140515
  Serious: Yes (Other)
  Sender: FDA-Public Use
  Company Number: US-SANOFI-AVENTIS-2013SA092657

PATIENT
  Age: 45 Year
  Sex: Female

DRUGS (1)
  1. FABRAZYME [Suspect]
     Indication: FABRY^S DISEASE
     Dosage: 70 MG/INFUSION (0.66 MG/KG/ INF)
     Route: 042

REACTIONS (3)
  - Transient ischaemic attack [Unknown]
  - Vision blurred [Unknown]
  - Headache [Unknown]
